FAERS Safety Report 8795461 (Version 2)
Quarter: 2012Q4

REPORT INFORMATION
  Report Type: 
  Country: JP (occurrence: JP)
  Receive Date: 20120917
  Receipt Date: 20121011
  Transmission Date: 20130627
  Serious: Yes (Hospitalization, Other)
  Sender: FDA-Public Use
  Company Number: JP-ROCHE-1117628

PATIENT
  Age: 42 Year
  Sex: Female

DRUGS (4)
  1. HERCEPTIN [Suspect]
     Indication: BREAST CANCER
     Route: 041
     Dates: start: 20050516, end: 20050516
  2. HERCEPTIN [Suspect]
     Indication: BREAST CANCER
     Route: 041
     Dates: start: 20050523, end: 20050830
  3. ADRIACIN [Suspect]
     Indication: BREAST CANCER
     Dosage: Dosage is uncertain.
     Route: 042
  4. TAXOL [Concomitant]
     Indication: BREAST CANCER
     Dosage: Dosage is uncertain.
     Route: 041
     Dates: end: 20050831

REACTIONS (3)
  - Cardiac failure [Recovering/Resolving]
  - Phaeochromocytoma [Recovering/Resolving]
  - Hypertension [Unknown]
